FAERS Safety Report 12218536 (Version 1)
Quarter: 2016Q1

REPORT INFORMATION
  Report Type: Spontaneous
  Country: US (occurrence: US)
  Receive Date: 20160329
  Receipt Date: 20160329
  Transmission Date: 20160526
  Serious: No
  Sender: FDA-Public Use
  Company Number: US-BAUSCH-BL-2015-029036

PATIENT
  Sex: Female
  Weight: 57.2 kg

DRUGS (2)
  1. RETIN-A [Suspect]
     Active Substance: TRETINOIN
     Dosage: AT NIGHT
     Route: 061
     Dates: start: 2015
  2. RETIN-A [Suspect]
     Active Substance: TRETINOIN
     Indication: SKIN WRINKLING
     Dosage: ONCE EVERY OTHER DAY
     Route: 061
     Dates: start: 2015, end: 2015

REACTIONS (2)
  - Dilated pores [Unknown]
  - Off label use [Unknown]

NARRATIVE: CASE EVENT DATE: 2015
